FAERS Safety Report 18694207 (Version 1)
Quarter: 2020Q4

REPORT INFORMATION
  Report Type: Spontaneous
  Country: US (occurrence: US)
  Receive Date: 20201231
  Receipt Date: 20201231
  Transmission Date: 20210114
  Serious: Yes (Hospitalization)
  Sender: FDA-Public Use
  Company Number: None

PATIENT
  Sex: Male
  Weight: 85.73 kg

DRUGS (2)
  1. DOCETAXEL 125MG [Suspect]
     Active Substance: DOCETAXEL
     Dates: end: 20201204
  2. CARBOPLATIN 65MG [Suspect]
     Active Substance: CARBOPLATIN
     Dates: end: 20201204

REACTIONS (3)
  - Anaemia [None]
  - SARS-CoV-2 test positive [None]
  - Pyrexia [None]

NARRATIVE: CASE EVENT DATE: 20201223
